FAERS Safety Report 7570661-7 (Version None)
Quarter: 2011Q2

REPORT INFORMATION
  Report Type: 
  Country: None (occurrence: None)
  Receive Date: 20110624
  Receipt Date: 20110427
  Transmission Date: 20111010
  Serious: No
  Sender: FDA-Public Use
  Company Number: US-ALLERGAN-1105813US

PATIENT
  Age: 50 Year
  Sex: Female

DRUGS (1)
  1. LATISSE [Suspect]
     Indication: EYELASH DISCOLOURATION
     Dosage: 1 GTT, UNK
     Route: 061
     Dates: start: 20110411, end: 20110418

REACTIONS (9)
  - URTICARIA [None]
  - FACIAL PAIN [None]
  - SWELLING FACE [None]
  - EYELID MARGIN CRUSTING [None]
  - DRY SKIN [None]
  - EYELID IRRITATION [None]
  - ERYTHEMA [None]
  - EYELID OEDEMA [None]
  - ERYTHEMA OF EYELID [None]
